FAERS Safety Report 6771326-1 (Version None)
Quarter: 2010Q2

REPORT INFORMATION
  Report Type: 
  Country: None (occurrence: None)
  Receive Date: 20100616
  Receipt Date: 20100604
  Transmission Date: 20101027
  Serious: Yes (Hospitalization)
  Sender: FDA-Public Use
  Company Number: FR-WYE-H15585310

PATIENT
  Age: 77 Year
  Sex: Female

DRUGS (4)
  1. CORDARONE [Suspect]
     Indication: ATRIAL FIBRILLATION
     Route: 048
     Dates: start: 20090924, end: 20091002
  2. PREVISCAN [Concomitant]
     Indication: ATRIAL FIBRILLATION
     Dosage: UNSPECIFIED
     Dates: start: 20090924, end: 20091005
  3. FLECAINIDE ACETATE [Concomitant]
     Dosage: UNSPECIFIED
     Dates: start: 20091002, end: 20091003
  4. CARDENSIEL [Concomitant]
     Indication: ATRIAL FIBRILLATION
     Dosage: UNSPECIFIED
     Dates: start: 20090924, end: 20091002

REACTIONS (2)
  - DRUG ERUPTION [None]
  - GASTROINTESTINAL DISORDER [None]
